FAERS Safety Report 23156537 (Version 1)
Quarter: 2023Q4

REPORT INFORMATION
  Report Type: Spontaneous
  Country: US (occurrence: US)
  Receive Date: 20231107
  Receipt Date: 20231107
  Transmission Date: 20240109
  Serious: No
  Sender: FDA-Public Use
  Company Number: US-COLLEGIUM PHARMACEUTICAL, INC.-20230900784

PATIENT

DRUGS (1)
  1. BELBUCA [Suspect]
     Active Substance: BUPRENORPHINE HYDROCHLORIDE
     Indication: Product used for unknown indication
     Dosage: 300 MICROGRAM, UNKNOWN
     Route: 002

REACTIONS (7)
  - Nausea [Unknown]
  - Vomiting [Unknown]
  - Feeling hot [Unknown]
  - Anxiety [Unknown]
  - Headache [Unknown]
  - Dizziness [Unknown]
  - Product adhesion issue [Unknown]
